FAERS Safety Report 10717090 (Version 1)
Quarter: 2015Q1

REPORT INFORMATION
  Report Type: Spontaneous
  Country: US (occurrence: US)
  Receive Date: 20150116
  Receipt Date: 20150116
  Transmission Date: 20150721
  Serious: No
  Sender: FDA-Public Use
  Company Number: US-PFIZER INC-2015014205

PATIENT
  Age: 59 Year
  Sex: Female
  Weight: 58 kg

DRUGS (3)
  1. CELEXA [Concomitant]
     Active Substance: CITALOPRAM HYDROBROMIDE
     Indication: ANTIDEPRESSANT THERAPY
     Dosage: 40 MG, 1X/DAY
  2. CHANTIX [Suspect]
     Active Substance: VARENICLINE TARTRATE
     Indication: SMOKING CESSATION THERAPY
     Dosage: UNK, 1X/DAY (IN THE MORNING)
     Dates: start: 201501, end: 201501
  3. CHANTIX [Suspect]
     Active Substance: VARENICLINE TARTRATE
     Dosage: UNK, 2X/DAY (IN THE MORNING AND IN THE EVENING)
     Dates: start: 201501

REACTIONS (4)
  - Nausea [Unknown]
  - Sleep disorder [Unknown]
  - Feeling abnormal [Unknown]
  - Flatulence [Unknown]

NARRATIVE: CASE EVENT DATE: 201501
